FAERS Safety Report 5526127-9 (Version None)
Quarter: 2007Q4

REPORT INFORMATION
  Report Type: 
  Country: None (occurrence: None)
  Receive Date: 20071120
  Receipt Date: 20071112
  Transmission Date: 20080405
  Serious: Yes (Hospitalization)
  Sender: FDA-Public Use
  Company Number: 2007AL004789

PATIENT
  Age: 54 Year
  Sex: Female

DRUGS (2)
  1. VERAPAMIL HYDROCHLORIDE [Suspect]
     Dosage: 40 MG; TID;
  2. TICLID [Concomitant]

REACTIONS (8)
  - AGRANULOCYTOSIS [None]
  - BACTERIAL INFECTION [None]
  - HYPOCHROMIC ANAEMIA [None]
  - IRON DEFICIENCY ANAEMIA [None]
  - LYMPHOPENIA [None]
  - NECROTISING ULCERATIVE GINGIVOSTOMATITIS [None]
  - STAPHYLOCOCCAL INFECTION [None]
  - TOOTHACHE [None]
